FAERS Safety Report 25088785 (Version 1)
Quarter: 2025Q1

REPORT INFORMATION
  Report Type: Spontaneous
  Country: FR (occurrence: FR)
  Receive Date: 20250318
  Receipt Date: 20250318
  Transmission Date: 20250409
  Serious: Yes (Hospitalization, Other)
  Sender: SANOFI AVENTIS
  Company Number: None

PATIENT
  Age: 81 Year
  Sex: Female
  Weight: 32.3 kg

DRUGS (7)
  1. RIFAMPIN [Suspect]
     Active Substance: RIFAMPIN
     Indication: Mycobacterium avium complex infection
     Dosage: 300 MG, QD
     Route: 048
     Dates: start: 20250218, end: 20250221
  2. AZITHROMYCIN [Suspect]
     Active Substance: AZITHROMYCIN
     Indication: Mycobacterium avium complex infection
     Dosage: 250 MG, QD
     Route: 048
     Dates: start: 20250218, end: 20250221
  3. ETHAMBUTOL HYDROCHLORIDE [Concomitant]
     Active Substance: ETHAMBUTOL HYDROCHLORIDE
     Indication: Mycobacterium avium complex infection
     Dosage: 500 MG, QD
     Route: 048
     Dates: start: 20250218, end: 20250221
  4. ASCORBIC ACID [Concomitant]
     Active Substance: ASCORBIC ACID
     Indication: Vitamin supplementation
     Dosage: 500 MG, BID
     Route: 048
     Dates: start: 20250218, end: 20250221
  5. BISOPROLOL [Concomitant]
     Active Substance: BISOPROLOL
  6. SERTRALINE HYDROCHLORIDE [Concomitant]
     Active Substance: SERTRALINE HYDROCHLORIDE
  7. LOVENOX [Concomitant]
     Active Substance: ENOXAPARIN SODIUM

REACTIONS (1)
  - Hepatic cytolysis [Recovering/Resolving]

NARRATIVE: CASE EVENT DATE: 20250221
